FAERS Safety Report 20909666 (Version 1)
Quarter: 2022Q2

REPORT INFORMATION
  Report Type: Spontaneous
  Country: CA (occurrence: None)
  Receive Date: 20220603
  Receipt Date: 20220603
  Transmission Date: 20220720
  Serious: Yes (Hospitalization)
  Sender: FDA-Public Use
  Company Number: CA-ROCHE-3109044

PATIENT
  Age: 44 Year
  Sex: Male

DRUGS (10)
  1. CLONAZEPAM [Suspect]
     Active Substance: CLONAZEPAM
     Indication: Anxiety
     Route: 065
  2. CITALOPRAM [Suspect]
     Active Substance: CITALOPRAM HYDROBROMIDE
     Indication: Product used for unknown indication
     Route: 065
  3. QUETIAPINE [Suspect]
     Active Substance: QUETIAPINE
     Indication: Depression
     Route: 065
  4. ISENTRESS [Suspect]
     Active Substance: RALTEGRAVIR POTASSIUM
     Indication: HIV infection
     Route: 048
  5. RISPERIDONE [Suspect]
     Active Substance: RISPERIDONE
     Indication: Depression
     Route: 065
  6. BUPROPION [Suspect]
     Active Substance: BUPROPION
     Indication: Depression
     Route: 065
  7. EMTRICITABINE [Concomitant]
     Active Substance: EMTRICITABINE
  8. RITONAVIR [Concomitant]
     Active Substance: RITONAVIR
  9. ATAZANAVIR [Concomitant]
     Active Substance: ATAZANAVIR
  10. TENOFOVIR [Concomitant]
     Active Substance: TENOFOVIR

REACTIONS (11)
  - Psychiatric decompensation [Unknown]
  - Depression suicidal [Unknown]
  - Tearfulness [Unknown]
  - Anxiety [Unknown]
  - Depressive symptom [Unknown]
  - Suicidal ideation [Unknown]
  - Drug interaction [Unknown]
  - Depression [Unknown]
  - Paranoia [Unknown]
  - Psychomotor retardation [Unknown]
  - Psychotic disorder [Unknown]
